FAERS Safety Report 8394357-7 (Version None)
Quarter: 2012Q2

REPORT INFORMATION
  Report Type: 
  Country: None (occurrence: None)
  Receive Date: 20120530
  Receipt Date: 20120522
  Transmission Date: 20120825
  Serious: Yes (Hospitalization, Other)
  Sender: FDA-Public Use
  Company Number: US-BAYER-2012-009554

PATIENT
  Age: 38 Year
  Sex: Female
  Weight: 94.331 kg

DRUGS (5)
  1. YASMIN [Suspect]
     Indication: CONTRACEPTION
     Dosage: UNK
     Dates: start: 20040401, end: 20080901
  2. METFORMIN HCL [Concomitant]
     Indication: POLYCYSTIC OVARIES
     Dosage: UNK
     Dates: start: 20010101
  3. DROSPIRENONE AND ETHINYL ESTRADIOL [Suspect]
     Indication: CONTRACEPTION
     Dosage: UNK
     Dates: start: 20081001, end: 20091201
  4. LORTAB [Concomitant]
     Indication: PAIN
     Dosage: 1 TABLET EVERY 4 HOURS, PRN
     Route: 048
  5. PROMETHAZINE [Concomitant]
     Indication: NAUSEA
     Dosage: 12.5 MG, EVERY 6 HOURS
     Route: 048

REACTIONS (7)
  - ABDOMINAL PAIN [None]
  - EMOTIONAL DISTRESS [None]
  - CHOLELITHIASIS [None]
  - ANXIETY [None]
  - PAIN [None]
  - GENERAL PHYSICAL HEALTH DETERIORATION [None]
  - INCISIONAL HERNIA [None]
